FAERS Safety Report 16949547 (Version 2)
Quarter: 2019Q4

REPORT INFORMATION
  Report Type: Spontaneous
  Country: US (occurrence: US)
  Receive Date: 20191023
  Receipt Date: 20191025
  Transmission Date: 20200122
  Serious: Yes (Hospitalization)
  Sender: FDA-Public Use
  Company Number: US-TEVA-2019-US-1124727

PATIENT
  Sex: Female

DRUGS (2)
  1. ALPRAZOLAM TABLET-A [Suspect]
     Active Substance: ALPRAZOLAM
     Indication: ANXIETY DISORDER
  2. ALPRAZOLAM TABLET-A [Suspect]
     Active Substance: ALPRAZOLAM
     Indication: ANXIETY
     Dosage: DOSE STRENGTH: 0.5 MG
     Route: 065
     Dates: start: 1999

REACTIONS (6)
  - Drug ineffective [Unknown]
  - Insomnia [Unknown]
  - Gastrointestinal viral infection [Unknown]
  - Heart rate increased [Unknown]
  - Poor quality sleep [Unknown]
  - Product quality issue [Unknown]

NARRATIVE: CASE EVENT DATE: 201906
